FAERS Safety Report 25956492 (Version 2)
Quarter: 2025Q4

REPORT INFORMATION
  Report Type: Spontaneous
  Country: JP (occurrence: JP)
  Receive Date: 20251024
  Receipt Date: 20251027
  Transmission Date: 20260118
  Serious: Yes (Death)
  Sender: DAIICHI
  Company Number: JP-DSJP-DS-2025-157859-JP

PATIENT
  Age: 78 Year

DRUGS (1)
  1. ENHERTU [Suspect]
     Active Substance: FAM-TRASTUZUMAB DERUXTECAN-NXKI
     Indication: HER2 positive gastric cancer
     Dosage: 6.4 MG/KG, ONCE EVERY 3 WK
     Route: 041
     Dates: start: 20250722, end: 20250902

REACTIONS (2)
  - Disease progression [Fatal]
  - Decreased appetite [Unknown]

NARRATIVE: CASE EVENT DATE: 20250101
